FAERS Safety Report 9100790 (Version 3)
Quarter: 2013Q3

REPORT INFORMATION
  Report Type: Report from Study
  Country: JP (occurrence: JP)
  Receive Date: 20130214
  Receipt Date: 20130813
  Transmission Date: 20140515
  Serious: Yes (Other)
  Sender: FDA-Public Use
  Company Number: PHHO2013JP002450

PATIENT
  Age: 47 Year
  Sex: Male

DRUGS (4)
  1. NATEGLINIDE [Suspect]
     Indication: TYPE 2 DIABETES MELLITUS
     Dosage: 90 MG, TID
     Route: 048
     Dates: start: 20121101, end: 20130128
  2. MICAMLO [Concomitant]
     Indication: HYPERTENSION
     Dosage: UNK
     Dates: start: 20120625
  3. BEZAFIBRATE [Concomitant]
     Indication: HYPERLIPIDAEMIA
     Dosage: 400 MG, UNK
     Dates: start: 20120625
  4. GLACTIV [Concomitant]
     Indication: TYPE 2 DIABETES MELLITUS
     Dosage: 50 MG, UNK
     Dates: start: 20120625

REACTIONS (1)
  - Acute myeloid leukaemia [Recovered/Resolved]
